FAERS Safety Report 24446173 (Version 1)
Quarter: 2024Q4

REPORT INFORMATION
  Report Type: Spontaneous
  Country: NL (occurrence: NL)
  Receive Date: 20241016
  Receipt Date: 20241016
  Transmission Date: 20250114
  Serious: Yes (Other)
  Sender: MYLAN
  Company Number: None

PATIENT
  Age: 86 Year
  Sex: Female
  Weight: 77.1 kg

DRUGS (2)
  1. FUROSEMIDE [Suspect]
     Active Substance: FUROSEMIDE
     Indication: Pulmonary oedema
     Dosage: 40 MILLIGRAM, QD (1X PER DAY 1 PIECE )
     Route: 065
     Dates: start: 20230319, end: 20240925
  2. HYDROCHLOROTHIAZIDE [Concomitant]
     Active Substance: HYDROCHLOROTHIAZIDE
     Dosage: 1 DOSAGE FORM, (TABLET, 12.5 MG (MILLIGRAM)
     Route: 065

REACTIONS (1)
  - Hypokalaemia [Recovered/Resolved]
